FAERS Safety Report 7676625-7 (Version None)
Quarter: 2011Q3

REPORT INFORMATION
  Report Type: 
  Country: None (occurrence: None)
  Receive Date: 20110805
  Receipt Date: 20110721
  Transmission Date: 20111222
  Serious: Yes (Hospitalization)
  Sender: FDA-Public Use
  Company Number: 2011MA009249

PATIENT
  Age: 50 Year
  Sex: Male

DRUGS (4)
  1. OLANZAPINE [Suspect]
     Dosage: 20 MG
  2. PROMAZINE HYDROCHLORIDE [Suspect]
     Indication: RESTLESSNESS
  3. FLUVOXAMINE MALEATE [Suspect]
     Indication: DEPRESSION
     Dosage: 300 MG
  4. HALOPERIDOL [Suspect]
     Indication: RESTLESSNESS

REACTIONS (11)
  - SUICIDAL IDEATION [None]
  - INSOMNIA [None]
  - PARKINSONISM [None]
  - ANXIETY [None]
  - MUSCLE RIGIDITY [None]
  - AKATHISIA [None]
  - DEPRESSION [None]
  - FRUSTRATION [None]
  - MOVEMENT DISORDER [None]
  - RESTLESSNESS [None]
  - SLUGGISHNESS [None]
